FAERS Safety Report 24340286 (Version 1)
Quarter: 2024Q3

REPORT INFORMATION
  Report Type: Report from Study
  Country: GB (occurrence: GB)
  Receive Date: 20240919
  Receipt Date: 20240919
  Transmission Date: 20241016
  Serious: Yes (Hospitalization)
  Sender: SANDOZ
  Company Number: GB-SANDOZ-SDZ2024GB043489

PATIENT
  Sex: Male

DRUGS (2)
  1. HYRIMOZ [Suspect]
     Active Substance: ADALIMUMAB-ADAZ
     Dosage: 40 MG, EOW (40MG/0.4ML PRE-FILLED PEN)
     Route: 058
  2. HYRIMOZ [Suspect]
     Active Substance: ADALIMUMAB-ADAZ
     Indication: Psoriatic arthropathy
     Dosage: 40 MG, Q2W (40MG/0.8 MG/ML PRE-FILLED PEN)
     Route: 058
     Dates: start: 20231030

REACTIONS (3)
  - Hospitalisation [Unknown]
  - Headache [Unknown]
  - Malaise [Unknown]
